FAERS Safety Report 5580441-X (Version None)
Quarter: 2008Q1

REPORT INFORMATION
  Report Type: 
  Country: None (occurrence: None)
  Receive Date: 20080103
  Receipt Date: 20071226
  Transmission Date: 20080703
  Serious: Yes (Life-Threatening, Hospitalization)
  Sender: FDA-Public Use
  Company Number: TR-ABBOTT-08P-161-0431745-00

PATIENT
  Age: 25 Year
  Sex: Female

DRUGS (1)
  1. TARKA [Suspect]
     Indication: DRUG USE FOR UNKNOWN INDICATION
     Route: 048
     Dates: start: 20071225, end: 20071225

REACTIONS (2)
  - NAUSEA [None]
  - SUICIDE ATTEMPT [None]
